FAERS Safety Report 24241404 (Version 2)
Quarter: 2025Q2

REPORT INFORMATION
  Report Type: Spontaneous
  Country: PT (occurrence: PT)
  Receive Date: 20240823
  Receipt Date: 20250506
  Transmission Date: 20250716
  Serious: Yes (Hospitalization, Other)
  Sender: AUROBINDO
  Company Number: PT-CHEPLA-2024010292

PATIENT
  Age: 92 Year
  Sex: Male

DRUGS (6)
  1. TERBINAFINE [Suspect]
     Active Substance: TERBINAFINE
     Indication: Product used for unknown indication
     Dosage: 1 DOSAGE FORM, ONCE A DAY (TERBINAFINE 250 MG (1 PILL PER DAY).)
     Route: 065
  2. BETAHISTINE [Suspect]
     Active Substance: BETAHISTINE
     Indication: Product used for unknown indication
     Route: 065
  3. HYDROCHLOROTHIAZIDE\LOSARTAN POTASSIUM [Suspect]
     Active Substance: HYDROCHLOROTHIAZIDE\LOSARTAN POTASSIUM
     Indication: Product used for unknown indication
     Dosage: 1 DOSAGE FORM, ONCE A DAY (LOSARTAN+HIDROCLOROTIAZIA 50/12 MG (1 PILL PER DAY))
     Route: 065
  4. CHOLESTYRAMINE [Suspect]
     Active Substance: CHOLESTYRAMINE
     Indication: Cholestasis
     Route: 065
  5. PHYTONADIONE [Concomitant]
     Active Substance: PHYTONADIONE
     Indication: Malabsorption
     Route: 051
  6. Ursodeoxychol acid [Concomitant]
     Indication: Cholestasis
     Route: 065

REACTIONS (2)
  - Hepatitis toxic [Recovering/Resolving]
  - Off label use [Unknown]
